FAERS Safety Report 7885249-8 (Version None)
Quarter: 2011Q4

REPORT INFORMATION
  Report Type: 
  Country: None (occurrence: None)
  Receive Date: 20111102
  Receipt Date: 20111031
  Transmission Date: 20120403
  Serious: Yes (Hospitalization, Other)
  Sender: FDA-Public Use
  Company Number: DE-PFIZER INC-2011233288

PATIENT
  Age: 81 Year
  Sex: Female
  Weight: 63 kg

DRUGS (7)
  1. PALEXIA RETARD [Suspect]
     Dosage: 200-600 MG DAILY
     Route: 048
     Dates: start: 20110725, end: 20110806
  2. ACETAMINOPHEN [Suspect]
     Dosage: 1000-4000 MG DAILY
     Route: 042
     Dates: start: 20110725, end: 20110802
  3. LYRICA [Suspect]
     Dosage: 75 MG, 2X/DAY
     Route: 048
     Dates: start: 20110730, end: 20110808
  4. ZOLPIDEM [Suspect]
     Dosage: 10 MG, DAILY
     Route: 048
     Dates: start: 20110723, end: 20110808
  5. LYRICA [Suspect]
     Dosage: 75 MG, 2X/DAY
     Route: 048
     Dates: start: 20110725, end: 20110725
  6. TETRAZEPAM ^RATIOPHARM^ [Suspect]
     Dosage: 25-50 MG DAILY
     Route: 048
     Dates: start: 20110724, end: 20110805
  7. SIMVASTATIN [Concomitant]
     Dosage: 10 MG, UNK
     Dates: start: 20080101

REACTIONS (1)
  - HEPATITIS [None]
